FAERS Safety Report 5285932-7 (Version None)
Quarter: 2007Q2

REPORT INFORMATION
  Report Type: 
  Country: None (occurrence: None)
  Receive Date: 20070404
  Receipt Date: 20070328
  Transmission Date: 20071010
  Serious: Yes (Hospitalization)
  Sender: FDA-Public Use
  Company Number: FRWYE239428MAR07

PATIENT
  Age: 50 Year
  Sex: Female
  Weight: 61 kg

DRUGS (4)
  1. ADVIL [Suspect]
     Indication: INFLUENZA
     Route: 048
     Dates: start: 20070207, end: 20070207
  2. DOLIPRANE [Suspect]
     Indication: INFLUENZA
     Dosage: UNKNOWN
     Route: 048
     Dates: start: 20070207, end: 20070207
  3. OSELTAMIVIR [Suspect]
     Indication: INFLUENZA
     Dosage: UNKNOWN
     Route: 048
     Dates: start: 20070207, end: 20070207
  4. LEVOTHYROXINE SODIUM [Concomitant]
     Indication: HYPOTHYROIDISM
     Route: 048

REACTIONS (5)
  - CONVULSION [None]
  - GAZE PALSY [None]
  - LOSS OF CONSCIOUSNESS [None]
  - PYREXIA [None]
  - VOMITING [None]
